FAERS Safety Report 13776445 (Version 1)
Quarter: 2017Q3

REPORT INFORMATION
  Report Type: Spontaneous
  Country: GB (occurrence: GB)
  Receive Date: 20170721
  Receipt Date: 20170721
  Transmission Date: 20171127
  Serious: Yes (Other)
  Sender: FDA-Public Use
  Company Number: GB-PFIZER INC-2180630

PATIENT
  Age: 79 Year
  Sex: Female

DRUGS (5)
  1. METHOTREXATE SODIUM. [Suspect]
     Active Substance: METHOTREXATE SODIUM
     Indication: PRODUCT USED FOR UNKNOWN INDICATION
     Dosage: 21 DAYS
     Route: 048
  2. LIVIAL [Suspect]
     Active Substance: TIBOLONE
     Indication: DYSPAREUNIA
     Dosage: 0.5 DF, HALF A TABLET, UNK
     Route: 048
  3. LIVIAL [Suspect]
     Active Substance: TIBOLONE
     Indication: VULVOVAGINAL DRYNESS
     Dosage: UNK
     Route: 048
  4. LIVIAL [Suspect]
     Active Substance: TIBOLONE
     Indication: ATROPHIC VULVOVAGINITIS
     Dosage: UNK
     Route: 048
  5. VAGIFEM [Concomitant]
     Active Substance: ESTRADIOL
     Indication: PRODUCT USED FOR UNKNOWN INDICATION
     Dosage: UNK

REACTIONS (24)
  - Adverse drug reaction [Unknown]
  - Osteoarthritis [Not Recovered/Not Resolved]
  - Hyperkeratosis [Unknown]
  - Bone disorder [Unknown]
  - Eating disorder [Unknown]
  - Gait disturbance [Not Recovered/Not Resolved]
  - Umbilical hernia [Unknown]
  - Temporal arteritis [Unknown]
  - Gingival recession [Not Recovered/Not Resolved]
  - Tooth loss [Not Recovered/Not Resolved]
  - Knee arthroplasty [Unknown]
  - Malaise [Unknown]
  - Limb discomfort [Unknown]
  - Pain in extremity [Unknown]
  - Myalgia [Not Recovered/Not Resolved]
  - Gingival disorder [Unknown]
  - Resorption bone increased [Not Recovered/Not Resolved]
  - Body height decreased [Unknown]
  - Feeling abnormal [Unknown]
  - Incorrect dose administered [Unknown]
  - Hip arthroplasty [Unknown]
  - Spinal deformity [Unknown]
  - Rheumatoid arthritis [Not Recovered/Not Resolved]
  - General physical health deterioration [Not Recovered/Not Resolved]

NARRATIVE: CASE EVENT DATE: 2000
